FAERS Safety Report 16150236 (Version 1)
Quarter: 2019Q2

REPORT INFORMATION
  Report Type: Spontaneous
  Country: FR (occurrence: FR)
  Receive Date: 20190403
  Receipt Date: 20190403
  Transmission Date: 20190711
  Serious: Yes (Hospitalization)
  Sender: FDA-Public Use
  Company Number: PHHY2019FR068672

PATIENT
  Age: 39 Year
  Sex: Male
  Weight: 63 kg

DRUGS (2)
  1. PARACETAMOL [Suspect]
     Active Substance: ACETAMINOPHEN
     Indication: TOXICITY TO VARIOUS AGENTS
     Dosage: 30 G, UNK (30 G SUR 3 JOURS)
     Route: 048
  2. LYRICA [Suspect]
     Active Substance: PREGABALIN
     Indication: TOXICITY TO VARIOUS AGENTS
     Dosage: 42 DF, UNK (42 COMPRIM?S SUR 3 JOURS)
     Route: 065

REACTIONS (4)
  - Pneumonia aspiration [Recovered/Resolved]
  - Encephalopathy [Recovered/Resolved]
  - Toxicity to various agents [Recovered/Resolved]
  - Vomiting [Recovered/Resolved]

NARRATIVE: CASE EVENT DATE: 201811
